FAERS Safety Report 6107290-8 (Version None)
Quarter: 2009Q1

REPORT INFORMATION
  Report Type: 
  Country: None (occurrence: None)
  Receive Date: 20090309
  Receipt Date: 20090302
  Transmission Date: 20090719
  Serious: Yes (Death, Life-Threatening, Hospitalization)
  Sender: FDA-Public Use
  Company Number: DE-BAYER-200829557GPV

PATIENT
  Age: 74 Year
  Sex: Male
  Weight: 82 kg

DRUGS (55)
  1. MOXIFLOXACIN HCL [Suspect]
     Indication: INTESTINAL PERFORATION
     Route: 042
     Dates: start: 20081022, end: 20081023
  2. LASIX [Concomitant]
     Indication: PROPHYLAXIS
     Route: 042
     Dates: start: 20081021, end: 20081024
  3. LASIX [Concomitant]
     Route: 042
     Dates: start: 20081031, end: 20081031
  4. HEXORAL [Concomitant]
     Indication: INFECTION PROPHYLAXIS
     Route: 048
     Dates: start: 20081024, end: 20081101
  5. BIOMUC [Concomitant]
     Indication: PROPHYLAXIS
     Route: 042
     Dates: start: 20081022, end: 20081106
  6. HALDOL [Concomitant]
     Indication: ANAESTHESIA
     Route: 042
     Dates: start: 20081023
  7. NOVALGIN [Concomitant]
     Indication: PAIN PROPHYLAXIS
     Route: 042
     Dates: start: 20081022, end: 20081109
  8. PANTOZOL [Concomitant]
     Indication: PROPHYLAXIS AGAINST GASTROINTESTINAL ULCER
     Route: 042
     Dates: start: 20081021, end: 20081105
  9. METOCLOPRAMIDE HYDROCHLORIDE [Concomitant]
     Indication: PROPHYLAXIS OF NAUSEA AND VOMITING
     Route: 042
     Dates: start: 20081022, end: 20081106
  10. ATROVENT [Concomitant]
     Indication: PROPHYLAXIS
     Route: 042
     Dates: start: 20081022, end: 20081106
  11. SALBUMOL [Concomitant]
     Indication: PROPHYLAXIS
     Route: 048
     Dates: start: 20081022, end: 20081106
  12. CANDIO-HERMAL [Concomitant]
     Indication: INFECTION PROPHYLAXIS
     Route: 042
     Dates: start: 20081024, end: 20081102
  13. CALCIUM [Concomitant]
     Indication: PROPHYLAXIS
     Route: 042
     Dates: start: 20081024, end: 20081024
  14. CALCIUM [Concomitant]
     Route: 042
     Dates: start: 20081025, end: 20081105
  15. MAGNESIUM SULFATE [Concomitant]
     Indication: MINERAL SUPPLEMENTATION
     Route: 042
     Dates: start: 20081024, end: 20081105
  16. SELEN [Concomitant]
     Indication: PROPHYLAXIS
     Route: 042
     Dates: start: 20081025, end: 20081104
  17. UNIZINK [Concomitant]
     Indication: MINERAL SUPPLEMENTATION
     Route: 042
     Dates: start: 20081024, end: 20081105
  18. DIPIDOLOR [Concomitant]
     Indication: PAIN PROPHYLAXIS
     Route: 042
     Dates: start: 20081028, end: 20081105
  19. DIPIDOLOR [Concomitant]
     Route: 042
     Dates: start: 20081021, end: 20081022
  20. REMERGIL [Concomitant]
     Indication: FATIGUE
     Route: 042
     Dates: start: 20081023, end: 20081101
  21. KONAKION [Concomitant]
     Indication: VITAMIN SUPPLEMENTATION
     Route: 042
     Dates: start: 20081022, end: 20081105
  22. PROPOFOL [Concomitant]
     Indication: ANAESTHESIA
     Route: 042
     Dates: start: 20081023, end: 20081030
  23. PROPOFOL [Concomitant]
     Dosage: UNIT DOSE: 2 %
     Route: 042
     Dates: start: 20081022, end: 20081022
  24. DOCITON [Concomitant]
     Indication: HYPERTENSION
     Route: 048
     Dates: start: 20081023, end: 20081023
  25. DOCITON [Concomitant]
     Route: 048
     Dates: start: 20081030, end: 20081030
  26. NADIC [Concomitant]
     Indication: PROPHYLAXIS
     Route: 042
     Dates: start: 20081022, end: 20081024
  27. LOPRESOR [Concomitant]
     Indication: HYPERTENSION
     Route: 042
     Dates: start: 20081023, end: 20081023
  28. MORPHINE [Concomitant]
     Indication: PAIN PROPHYLAXIS
     Route: 042
     Dates: start: 20081023, end: 20081023
  29. ATROPIN [Concomitant]
     Indication: CARDIAC ARREST
     Route: 042
     Dates: start: 20081024, end: 20081024
  30. ATROPIN [Concomitant]
     Route: 042
     Dates: start: 20081022, end: 20081023
  31. EBRANTIL [Concomitant]
     Indication: BRADYCARDIA
     Route: 042
     Dates: start: 20081024, end: 20081024
  32. THEOPHYLLINE [Concomitant]
     Indication: BRADYCARDIA
     Route: 042
     Dates: start: 20081024, end: 20081025
  33. INSULIN [Concomitant]
     Indication: PROPHYLAXIS
     Route: 058
     Dates: start: 20081026, end: 20081105
  34. OCTAPLEX [Concomitant]
     Indication: VITAMIN SUPPLEMENTATION
     Route: 042
     Dates: start: 20081104, end: 20081104
  35. ACETYLCYSTEINE [Concomitant]
     Indication: PROPHYLAXIS
     Route: 048
     Dates: start: 20081021, end: 20081024
  36. ROCURONIUM BROMIDE [Concomitant]
     Indication: ANAESTHESIA
     Route: 042
     Dates: start: 20081024, end: 20081024
  37. ROCURONIUM BROMIDE [Concomitant]
     Route: 042
     Dates: start: 20081022, end: 20081022
  38. DIGITOXIN TAB [Concomitant]
     Indication: TACHYARRHYTHMIA
     Route: 042
     Dates: start: 20081024, end: 20081024
  39. CORDAREX [Concomitant]
     Indication: BRADYCARDIA
     Route: 042
     Dates: start: 20081024, end: 20081024
  40. METOPROLOL [Concomitant]
     Indication: INTRAOPERATIVE CARE
     Route: 042
     Dates: start: 20081024, end: 20081024
  41. BREVIBLOC [Concomitant]
     Indication: TACHYARRHYTHMIA
     Route: 042
     Dates: start: 20081024, end: 20081024
  42. BETABION [Concomitant]
     Indication: VITAMIN B COMPLEX DEFICIENCY
     Route: 042
     Dates: start: 20081101, end: 20081105
  43. ANTITHROMBIN III [Concomitant]
     Indication: THROMBOSIS PROPHYLAXIS
     Route: 042
     Dates: start: 20081026, end: 20081026
  44. ALBUMIN (HUMAN) [Concomitant]
     Indication: BLOOD ALBUMIN DECREASED
     Route: 042
     Dates: start: 20081026, end: 20081102
  45. POTASSIUM CHLORIDE [Concomitant]
     Indication: PROPHYLAXIS
     Route: 042
     Dates: start: 20081022, end: 20081105
  46. SODIUM CHLORIDE [Concomitant]
     Indication: FLUID REPLACEMENT
     Route: 042
     Dates: start: 20081022, end: 20081105
  47. VOMEX [Concomitant]
     Indication: PROPHYLAXIS OF NAUSEA AND VOMITING
     Route: 042
     Dates: start: 20081022, end: 20081022
  48. ETOMIDATE [Concomitant]
     Indication: ANAESTHESIA
     Route: 042
     Dates: start: 20081024, end: 20081024
  49. SUFENTA PRESERVATIVE FREE [Concomitant]
     Indication: ANAESTHESIA
     Route: 042
     Dates: start: 20081024, end: 20081026
  50. SUFENTA PRESERVATIVE FREE [Concomitant]
     Route: 042
     Dates: start: 20081023, end: 20081024
  51. AKRINOR [Concomitant]
     Indication: ANAESTHESIA
     Route: 042
     Dates: start: 20081022, end: 20081022
  52. NEOSTIGMIN [Concomitant]
     Indication: ANAESTHESIA
     Route: 042
     Dates: start: 20081022, end: 20081022
  53. SUPRARENIN [Concomitant]
     Indication: BRADYCARDIA
     Route: 042
     Dates: start: 20081024, end: 20081028
  54. PROPOFOL [Concomitant]
     Indication: ANAESTHESIA
     Route: 042
     Dates: start: 20081022, end: 20081029
  55. TRAPANAL [Concomitant]
     Indication: ANAESTHESIA
     Route: 042
     Dates: start: 20081022, end: 20081022

REACTIONS (5)
  - CARDIAC ARREST [None]
  - LARGE INTESTINE PERFORATION [None]
  - RENAL FAILURE ACUTE [None]
  - SEPSIS [None]
  - TACHYARRHYTHMIA [None]
